FAERS Safety Report 6603951-2 (Version None)
Quarter: 2010Q1

REPORT INFORMATION
  Report Type: 
  Country: None (occurrence: None)
  Receive Date: 20100226
  Receipt Date: 20090427
  Transmission Date: 20100710
  Serious: Yes (Disabling)
  Sender: FDA-Public Use
  Company Number: A0775629A

PATIENT
  Age: 30 Year
  Sex: Female

DRUGS (2)
  1. LAMICTAL CD [Suspect]
     Dosage: 25MG SINGLE DOSE
     Route: 048
     Dates: start: 20090105
  2. FLUOXETINE [Concomitant]

REACTIONS (3)
  - NAUSEA [None]
  - RASH [None]
  - URTICARIA [None]
